FAERS Safety Report 24413701 (Version 6)
Quarter: 2025Q2

REPORT INFORMATION
  Report Type: Spontaneous
  Country: US (occurrence: US)
  Receive Date: 20241008
  Receipt Date: 20250409
  Transmission Date: 20250716
  Serious: Yes (Other)
  Sender: APELLIS PHARMACEUTICALS
  Company Number: US-APELLIS-2024-APL-0001133

PATIENT

DRUGS (17)
  1. SYFOVRE [Suspect]
     Active Substance: PEGCETACOPLAN
     Indication: Dry age-related macular degeneration
     Route: 031
     Dates: start: 20240712, end: 20240906
  2. SYFOVRE [Suspect]
     Active Substance: PEGCETACOPLAN
     Indication: Dry age-related macular degeneration
     Route: 031
     Dates: start: 20240712, end: 20240906
  3. LATANOPROST [Concomitant]
     Active Substance: LATANOPROST
     Indication: Product used for unknown indication
  4. LATANOPROST [Concomitant]
     Active Substance: LATANOPROST
     Route: 047
  5. DORZOLAMIDE HYDROCHLORIDE AND TIMOLOL MALEATE [Concomitant]
     Active Substance: DORZOLAMIDE HYDROCHLORIDE\TIMOLOL MALEATE
     Indication: Product used for unknown indication
     Dosage: DORZOLAMIDE 22.3MG-TIMOLOL 6.8MG/ML EYE DROPS 1 GTT, BID OU
  6. Arterosil [Concomitant]
     Indication: Product used for unknown indication
     Dosage: 1 CAPSULE, QDAY
  7. ATORVASTATIN [Concomitant]
     Active Substance: ATORVASTATIN
     Indication: Product used for unknown indication
     Dosage: 1 TAB, QDAY BY MOUTH
     Route: 048
  8. LEVOTHYROXINE [Concomitant]
     Active Substance: LEVOTHYROXINE
     Indication: Product used for unknown indication
     Dosage: 1TAB, QDAY
  9. LEVOTHYROXINE [Concomitant]
     Active Substance: LEVOTHYROXINE
     Dosage: 100 MCG, ORAL TABLET. 1 TABLET QDAY BY MOUTH
     Route: 048
  10. GLYBURIDE [Concomitant]
     Active Substance: GLYBURIDE
     Indication: Product used for unknown indication
     Dosage: 1TAB, QDAY
  11. GLYBURIDE [Concomitant]
     Active Substance: GLYBURIDE
     Dosage: 6MG ORAL TABLET, 1/2 TABLET QDAY BY MOUTH
     Route: 048
  12. ASPIRIN [Concomitant]
     Active Substance: ASPIRIN
     Indication: Product used for unknown indication
     Dosage: DELAYED RELEASE ORAL 1 TAB
     Route: 048
  13. CINNAMON [Concomitant]
     Active Substance: CINNAMON
     Indication: Product used for unknown indication
     Dosage: 500MG ORAL CAPSULE 1 TABLET QDAY BY MOUTH
     Route: 048
  14. Afye omega 3 [Concomitant]
     Indication: Product used for unknown indication
     Route: 048
  15. Sea omega [Concomitant]
     Indication: Product used for unknown indication
     Dosage: 1 TABLET QDAY BY MOUTH
     Route: 048
  16. GARLIC [Concomitant]
     Active Substance: GARLIC
     Indication: Product used for unknown indication
     Dosage: ORAL CAPSULE 1 TABLET QDAY BY MOUTH
     Route: 048
  17. HYPOCHLOROUS ACID [Concomitant]
     Active Substance: HYPOCHLOROUS ACID
     Indication: Product used for unknown indication

REACTIONS (6)
  - Retinal vasculitis [Recovering/Resolving]
  - Tractional retinal detachment [Recovered/Resolved]
  - Vitreous haemorrhage [Recovering/Resolving]
  - Visual impairment [Recovering/Resolving]
  - Vitritis [Unknown]
  - Adverse drug reaction [Unknown]

NARRATIVE: CASE EVENT DATE: 20240910
